FAERS Safety Report 11162186 (Version 1)
Quarter: 2015Q2

REPORT INFORMATION
  Report Type: Spontaneous
  Country: US (occurrence: US)
  Receive Date: 20150604
  Receipt Date: 20150604
  Transmission Date: 20150821
  Serious: No
  Sender: FDA-Public Use
  Company Number: US-SA-2014SA127642

PATIENT
  Sex: Female

DRUGS (3)
  1. FLEXPEN [Concomitant]
     Active Substance: UNSPECIFIED INGREDIENT
  2. LANTUS [Suspect]
     Active Substance: INSULIN GLARGINE
     Indication: DIABETES MELLITUS
     Route: 065
  3. NOVOLOG [Concomitant]
     Active Substance: INSULIN ASPART

REACTIONS (7)
  - Head injury [Unknown]
  - Peripheral coldness [Unknown]
  - Palpitations [Unknown]
  - Paraesthesia [Unknown]
  - Tremor [Unknown]
  - Disorientation [Unknown]
  - Blood glucose increased [Unknown]
